FAERS Safety Report 24334283 (Version 5)
Quarter: 2025Q1

REPORT INFORMATION
  Report Type: Report from Study
  Country: IN (occurrence: IN)
  Receive Date: 20240918
  Receipt Date: 20250226
  Transmission Date: 20250409
  Serious: No
  Sender: JOHNSON AND JOHNSON
  Company Number: IN-JNJFOC-20240903938

PATIENT
  Age: 62 Year
  Sex: Male
  Weight: 76 kg

DRUGS (8)
  1. SIMPONI [Suspect]
     Active Substance: GOLIMUMAB
     Indication: Rheumatoid arthritis
     Route: 058
     Dates: start: 20230130
  2. CALPORUS [Concomitant]
     Route: 048
     Dates: start: 20240719
  3. FOLVITE [Concomitant]
     Active Substance: FOLIC ACID
     Dosage: TWO TIMES A WEEK
     Route: 048
     Dates: start: 20240719
  4. MIMOD [Concomitant]
     Dosage: 1 TABLET MORNING
     Route: 048
  5. LEFLUNOMIDE [Concomitant]
     Active Substance: LEFLUNOMIDE
     Dosage: 1 TABLET MORNING??FREQUENCY:1
     Route: 048
     Dates: start: 20240719
  6. HYDROXYCHLOROQUINE SULFATE [Concomitant]
     Active Substance: HYDROXYCHLOROQUINE SULFATE
     Dosage: 1 TABLET NIGHT
     Route: 048
     Dates: start: 20240719
  7. DEFCORT [Concomitant]
     Dosage: 1 TABLET MORNING
     Route: 048
     Dates: start: 20240719
  8. TAYO [COLECALCIFEROL] [Concomitant]
     Dosage: 60 K
     Route: 048

REACTIONS (2)
  - Device deployment issue [Unknown]
  - Product dose omission issue [Unknown]

NARRATIVE: CASE EVENT DATE: 20240831
